FAERS Safety Report 17020883 (Version 1)
Quarter: 2019Q4

REPORT INFORMATION
  Report Type: Report from Study
  Country: IT (occurrence: IT)
  Receive Date: 20191112
  Receipt Date: 20191112
  Transmission Date: 20200122
  Serious: Yes (Hospitalization)
  Sender: FDA-Public Use
  Company Number: PHHY2017IT082870

PATIENT
  Age: 71 Year
  Sex: Female
  Weight: 85 kg

DRUGS (6)
  1. SIGNIFOR [Suspect]
     Active Substance: PASIREOTIDE
     Indication: PITUITARY-DEPENDENT CUSHING^S SYNDROME
     Dosage: UNK
     Route: 058
     Dates: start: 20160215, end: 20161024
  2. SIGNIFOR [Suspect]
     Active Substance: PASIREOTIDE
     Dosage: 1.2 MG, QD
     Route: 058
     Dates: start: 20161025
  3. BEMIPARIN [Concomitant]
     Active Substance: BEMIPARIN
     Indication: PERIPHERAL VENOUS DISEASE
     Dosage: 3500 U, UNK
     Route: 065
     Dates: start: 20090501
  4. VERAPAMIL [Concomitant]
     Active Substance: VERAPAMIL HYDROCHLORIDE
     Indication: HYPERTENSION
     Dosage: 40 MG, BID
     Route: 065
     Dates: start: 20050101
  5. SITAGLIPTIN METFORMIN [Concomitant]
     Active Substance: METFORMIN HYDROCHLORIDE\SITAGLIPTIN PHOSPHATE
     Indication: DIABETES MELLITUS
     Dosage: 50 PLUS 1000 MG
     Route: 065
     Dates: start: 20170131
  6. SIGNIFOR [Suspect]
     Active Substance: PASIREOTIDE
     Dosage: UNK
     Route: 065
     Dates: start: 20190701

REACTIONS (5)
  - Muscular weakness [Recovered/Resolved]
  - Hypercholesterolaemia [Recovered/Resolved]
  - Anaemia [Unknown]
  - Blood glucose increased [Unknown]
  - Hypomagnesaemia [Unknown]

NARRATIVE: CASE EVENT DATE: 20170421
